FAERS Safety Report 17949394 (Version 1)
Quarter: 2020Q2

REPORT INFORMATION
  Report Type: Spontaneous
  Country: IT (occurrence: IT)
  Receive Date: 20200626
  Receipt Date: 20200626
  Transmission Date: 20200714
  Serious: Yes (Other)
  Sender: FDA-Public Use
  Company Number: IT-ACCORD-186743

PATIENT
  Age: 60 Year
  Sex: Female

DRUGS (1)
  1. MYCOPHENOLIC ACID ACCORD [Suspect]
     Active Substance: MYCOPHENOLIC ACID
     Indication: IMMUNOSUPPRESSION
     Dosage: STRENGTH: 180 MG GASTRO-RESISTANT TABLETS, LAST DOSE ADMINISTERED ON 12-JUN-2020
     Route: 048
     Dates: start: 20190711

REACTIONS (2)
  - Renal impairment [Unknown]
  - Drug ineffective [Unknown]
